FAERS Safety Report 7213701-7 (Version None)
Quarter: 2011Q1

REPORT INFORMATION
  Report Type: 
  Country: None (occurrence: None)
  Receive Date: 20110106
  Receipt Date: 20110105
  Transmission Date: 20110831
  Serious: Yes (Other)
  Sender: FDA-Public Use
  Company Number: JP-PFIZER INC-2011002081

PATIENT
  Age: 40 Year
  Sex: Male

DRUGS (24)
  1. CYCLOPHOSPHAMIDE [Suspect]
     Indication: IMMUNODEFICIENCY
  2. MUSTARGEN [Suspect]
     Indication: DIFFUSE LARGE B-CELL LYMPHOMA
  3. MUSTARGEN [Suspect]
     Indication: HODGKIN'S DISEASE
  4. ONCOVIN [Suspect]
     Indication: HODGKIN'S DISEASE
  5. CYCLOPHOSPHAMIDE [Suspect]
     Indication: HODGKIN'S DISEASE
  6. METHOTREXATE SODIUM [Suspect]
     Indication: IMMUNODEFICIENCY
  7. ADRIAMYCIN PFS [Suspect]
     Indication: IMMUNODEFICIENCY
  8. PROCARBAZINE [Suspect]
     Indication: HODGKIN'S DISEASE
  9. PROCARBAZINE [Suspect]
     Indication: DIFFUSE LARGE B-CELL LYMPHOMA
  10. ETOPOSIDE [Suspect]
     Indication: DIFFUSE LARGE B-CELL LYMPHOMA
  11. ETOPOSIDE [Suspect]
     Indication: IMMUNODEFICIENCY
  12. ETOPOSIDE [Suspect]
     Indication: HODGKIN'S DISEASE
  13. ONCOVIN [Suspect]
     Indication: DIFFUSE LARGE B-CELL LYMPHOMA
  14. PREDNISONE [Suspect]
     Indication: DIFFUSE LARGE B-CELL LYMPHOMA
  15. METHOTREXATE SODIUM [Suspect]
     Indication: HODGKIN'S DISEASE
  16. ADRIAMYCIN PFS [Suspect]
     Indication: HODGKIN'S DISEASE
  17. CYCLOPHOSPHAMIDE [Suspect]
     Indication: DIFFUSE LARGE B-CELL LYMPHOMA
  18. ONCOVIN [Suspect]
     Indication: IMMUNODEFICIENCY
  19. ADRIAMYCIN PFS [Suspect]
     Indication: DIFFUSE LARGE B-CELL LYMPHOMA
  20. PREDNISONE [Suspect]
     Indication: HODGKIN'S DISEASE
  21. METHOTREXATE SODIUM [Suspect]
     Indication: DIFFUSE LARGE B-CELL LYMPHOMA
  22. PROCARBAZINE [Suspect]
     Indication: IMMUNODEFICIENCY
  23. MUSTARGEN [Suspect]
     Indication: IMMUNODEFICIENCY
  24. PREDNISONE [Suspect]
     Indication: IMMUNODEFICIENCY

REACTIONS (3)
  - BONE MARROW FAILURE [None]
  - MUCOUS MEMBRANE DISORDER [None]
  - RENAL DISORDER [None]
